FAERS Safety Report 17801579 (Version 1)
Quarter: 2020Q2

REPORT INFORMATION
  Report Type: Spontaneous
  Country: JP (occurrence: JP)
  Receive Date: 20200519
  Receipt Date: 20200519
  Transmission Date: 20200714
  Serious: Yes (Other)
  Sender: FDA-Public Use
  Company Number: NVSJ2020JP005020

PATIENT
  Sex: Female

DRUGS (2)
  1. STALEVO [Suspect]
     Active Substance: CARBIDOPA\ENTACAPONE\LEVODOPA
     Indication: PARKINSON^S DISEASE
     Dosage: UNK
     Route: 048
  2. STALEVO [Suspect]
     Active Substance: CARBIDOPA\ENTACAPONE\LEVODOPA
     Dosage: 1 DF: LEVODOPA 100 MG, CARBIDOPA 10 MG, ENTACAPONE 100 MG) X 1.5 TABLET, UNK
     Route: 048

REACTIONS (5)
  - Oral mucosal roughening [Unknown]
  - Oral mucosal discolouration [Unknown]
  - Aspiration [Unknown]
  - Wrong technique in product usage process [Unknown]
  - Chromaturia [Unknown]
